FAERS Safety Report 5033568-5 (Version None)
Quarter: 2006Q2

REPORT INFORMATION
  Report Type: 
  Country: None (occurrence: None)
  Receive Date: 20060620
  Receipt Date: 20060602
  Transmission Date: 20061013
  Serious: Yes (Hospitalization, Other)
  Sender: FDA-Public Use
  Company Number: 2006RR-02504

PATIENT
  Age: 40 Year
  Sex: Female

DRUGS (5)
  1. RANITIDINE [Suspect]
     Indication: GASTROOESOPHAGEAL REFLUX DISEASE
     Dosage: 150 MG, BID, ORAL
     Route: 048
     Dates: start: 20060324, end: 20060423
  2. NICORETTE [Suspect]
     Indication: SMOKING CESSATION THERAPY
     Dosage: 15 MG, NASAL
     Route: 045
     Dates: start: 20060330, end: 20060423
  3. NICOTINE [Concomitant]
  4. FOLIC ACID TABLET 5MG BP (FOLIC ACID) [Concomitant]
  5. NORFLOXACIN [Concomitant]

REACTIONS (3)
  - ERYTHEMA MULTIFORME [None]
  - PHARYNGEAL OEDEMA [None]
  - SWOLLEN TONGUE [None]
